FAERS Safety Report 16677430 (Version 1)
Quarter: 2019Q3

REPORT INFORMATION
  Report Type: Spontaneous
  Country: TW (occurrence: TW)
  Receive Date: 20190807
  Receipt Date: 20190807
  Transmission Date: 20191004
  Serious: Yes (Other)
  Sender: FDA-Public Use
  Company Number: PHHY2012TW144046

PATIENT
  Age: 5 Year
  Sex: Female

DRUGS (1)
  1. AMLODIPINE [Suspect]
     Active Substance: AMLODIPINE BESYLATE
     Indication: PRODUCT USED FOR UNKNOWN INDICATION
     Dosage: 5 MG, UNK
     Route: 048

REACTIONS (4)
  - Skin lesion [Unknown]
  - Seizure [Unknown]
  - Disease progression [Unknown]
  - Kidney angiomyolipoma [Unknown]

NARRATIVE: CASE EVENT DATE: 19920702
